FAERS Safety Report 4559005-2 (Version None)
Quarter: 2005Q1

REPORT INFORMATION
  Report Type: 
  Country: None (occurrence: None)
  Receive Date: 20050121
  Receipt Date: 20050121
  Transmission Date: 20050727
  Serious: Yes (Other)
  Sender: FDA-Public Use
  Company Number: None

PATIENT
  Sex: Female
  Weight: 68.0396 kg

DRUGS (1)
  1. CRESTOR [Suspect]
     Indication: HYPERLIPIDAEMIA
     Dosage: 1   DAY   ORAL
     Route: 048
     Dates: start: 20040322, end: 20040418

REACTIONS (8)
  - DECREASED ACTIVITY [None]
  - DIFFICULTY IN WALKING [None]
  - IMPAIRED WORK ABILITY [None]
  - MUSCLE INJURY [None]
  - MUSCULAR WEAKNESS [None]
  - MYOPATHY [None]
  - PAIN [None]
  - PAIN IN EXTREMITY [None]
